FAERS Safety Report 8145905-3 (Version None)
Quarter: 2012Q1

REPORT INFORMATION
  Report Type: 
  Country: None (occurrence: None)
  Receive Date: 20120217
  Receipt Date: 20110627
  Transmission Date: 20120608
  Serious: No
  Sender: FDA-Public Use
  Company Number: US-ABBOTT-11P-163-0834447-00

PATIENT
  Sex: Female
  Weight: 74.91 kg

DRUGS (1)
  1. SIMCOR [Suspect]
     Indication: BLOOD CHOLESTEROL INCREASED
     Dosage: 500/40 MG AT NIGHT
     Dates: start: 20110101

REACTIONS (4)
  - PRURITUS [None]
  - FEELING HOT [None]
  - RASH MACULO-PAPULAR [None]
  - FLUSHING [None]
